FAERS Safety Report 8814834 (Version 1)
Quarter: 2012Q4

REPORT INFORMATION
  Report Type: Spontaneous
  Country: MX (occurrence: None)
  Receive Date: 20120926
  Receipt Date: 20120926
  Transmission Date: 20130627
  Serious: Yes (Disabling)
  Sender: FDA-Public Use
  Company Number: B0832711A

PATIENT
  Age: 47 Year
  Sex: Male
  Weight: 77.84 kg

DRUGS (2)
  1. PROPAFENONE [Suspect]
     Indication: ATRIAL FIBRILLATION
  2. METOPROLOL [Concomitant]

REACTIONS (6)
  - Vision blurred [None]
  - Dizziness [None]
  - Dry mouth [None]
  - Colour blindness acquired [None]
  - Diarrhoea [None]
  - Flatulence [None]
